FAERS Safety Report 5518096-2 (Version None)
Quarter: 2007Q4

REPORT INFORMATION
  Report Type: 
  Country: None (occurrence: None)
  Receive Date: 20071113
  Receipt Date: 20071026
  Transmission Date: 20080405
  Serious: Yes (Life-Threatening, Hospitalization, Disabling, Other)
  Sender: FDA-Public Use
  Company Number: 163506ISR

PATIENT
  Age: 36 Year
  Sex: Male

DRUGS (1)
  1. TRIMETHOPRIM [Suspect]
     Dosage: 400 MG (200 MG,2 IN 1 D)
     Route: 048
     Dates: start: 20071005, end: 20071015

REACTIONS (3)
  - PERIPHERAL COLDNESS [None]
  - PYREXIA [None]
  - RASH MACULO-PAPULAR [None]
